FAERS Safety Report 5850033-3 (Version None)
Quarter: 2008Q3

REPORT INFORMATION
  Report Type: 
  Country: None (occurrence: None)
  Receive Date: 20080731
  Receipt Date: 20080417
  Transmission Date: 20090109
  Serious: No
  Sender: FDA-Public Use
  Company Number: US200804004900

PATIENT
  Age: 60 Year
  Sex: Female
  Weight: 104.3 kg

DRUGS (9)
  1. BYETTA [Suspect]
     Indication: TYPE 2 DIABETES MELLITUS
     Dosage: 5 UG, 2/D, SUBCUTANEOUS ; 5 UG, DAILY (1/D), SUBCUTANEOUS
     Route: 058
     Dates: start: 20050101, end: 20060101
  2. BYETTA [Suspect]
     Indication: TYPE 2 DIABETES MELLITUS
     Dosage: 5 UG, 2/D, SUBCUTANEOUS ; 5 UG, DAILY (1/D), SUBCUTANEOUS
     Route: 058
     Dates: start: 20070101, end: 20080101
  3. METFORMIN HCL [Concomitant]
  4. LIPITOR (ATORAVASTATIN CALCIUM) [Concomitant]
  5. FLUOXETINE HCL [Concomitant]
  6. WELLBUTRIN [Concomitant]
  7. CELEBREX [Concomitant]
  8. MULTIVITAMIN [Concomitant]
  9. CHROMIUM PICOLINATE (CHROMIUM PICOLINATE) [Concomitant]

REACTIONS (4)
  - BLOOD GLUCOSE DECREASED [None]
  - DECREASED APPETITE [None]
  - NASOPHARYNGITIS [None]
  - WEIGHT DECREASED [None]
